FAERS Safety Report 9297516 (Version 1)
Quarter: 2013Q2

REPORT INFORMATION
  Report Type: Spontaneous
  Country: US (occurrence: US)
  Receive Date: 20130520
  Receipt Date: 20130520
  Transmission Date: 20140414
  Serious: No
  Sender: FDA-Public Use
  Company Number: US-009507513-1305USA009698

PATIENT
  Sex: Female
  Weight: 54.42 kg

DRUGS (1)
  1. NUVARING [Suspect]
     Indication: CONTRACEPTION
     Dosage: 1 RING/3 WEEKS
     Route: 067
     Dates: start: 2011

REACTIONS (3)
  - Pain [Unknown]
  - Pelvic pain [Unknown]
  - Product quality issue [Unknown]
